FAERS Safety Report 7313053-8 (Version None)
Quarter: 2011Q1

REPORT INFORMATION
  Report Type: 
  Country: None (occurrence: None)
  Receive Date: 20110225
  Receipt Date: 20070830
  Transmission Date: 20110831
  Serious: No
  Sender: FDA-Public Use
  Company Number: 2007BI018844

PATIENT
  Age: 48 Year
  Sex: Female
  Weight: 90 kg

DRUGS (1)
  1. TYSABRI [Suspect]
     Indication: MULTIPLE SCLEROSIS
     Route: 042
     Dates: start: 20070725, end: 20070801

REACTIONS (2)
  - RASH [None]
  - HYPERSENSITIVITY [None]
